FAERS Safety Report 22180745 (Version 1)
Quarter: 2023Q2

REPORT INFORMATION
  Report Type: Spontaneous
  Country: ES (occurrence: ES)
  Receive Date: 20230406
  Receipt Date: 20230406
  Transmission Date: 20230722
  Serious: Yes (Other)
  Sender: FDA-Public Use
  Company Number: None

PATIENT
  Age: 45 Year
  Sex: Male

DRUGS (1)
  1. HYRIMOZ [Suspect]
     Active Substance: ADALIMUMAB-ADAZ
     Indication: Ankylosing spondylitis
     Dosage: UNK (1 PLUMA CADA 15 DIAS, 2 PRE-FILLED PENS OF 0.8 ML)
     Route: 058
     Dates: start: 20230109, end: 20230208

REACTIONS (1)
  - Tooth disorder [Recovering/Resolving]

NARRATIVE: CASE EVENT DATE: 20230109
